FAERS Safety Report 5017080-5 (Version None)
Quarter: 2006Q2

REPORT INFORMATION
  Report Type: 
  Country: None (occurrence: None)
  Receive Date: 20060526
  Receipt Date: 20060517
  Transmission Date: 20061013
  Serious: Yes (Death)
  Sender: FDA-Public Use
  Company Number: 2006-05-1705

PATIENT
  Age: 84 Year
  Sex: Female

DRUGS (1)
  1. PROVENTIL [Suspect]
     Dosage: ORAL AER INH
     Route: 055
     Dates: start: 20050729

REACTIONS (1)
  - DEATH [None]
